FAERS Safety Report 6252189-X (Version None)
Quarter: 2009Q2

REPORT INFORMATION
  Report Type: 
  Country: None (occurrence: None)
  Receive Date: 20090629
  Receipt Date: 20090611
  Transmission Date: 20091009
  Serious: Yes (Death, Hospitalization, Other)
  Sender: FDA-Public Use
  Company Number: 001065

PATIENT
  Sex: Female

DRUGS (5)
  1. DEPONIT (DEPONIT) [Suspect]
     Indication: ANGINA PECTORIS
     Dosage: ()
  2. DICLOFENAC            (DICLOFENAC) [Suspect]
     Indication: ARTHRALGIA
     Dosage: (2 TABLETS)
  3. ACETAMINOPHEN [Concomitant]
  4. RAMIPRIL [Concomitant]
  5. ALBUTEROL [Concomitant]

REACTIONS (7)
  - ABDOMINAL PAIN [None]
  - CARDIAC ARREST [None]
  - COLITIS ISCHAEMIC [None]
  - DIARRHOEA [None]
  - DYSPNOEA [None]
  - FALL [None]
  - PRURITUS [None]
